FAERS Safety Report 8793430 (Version 2)
Quarter: 2012Q4

REPORT INFORMATION
  Report Type: 
  Country: US (occurrence: US)
  Receive Date: 20120917
  Receipt Date: 20121019
  Transmission Date: 20130627
  Serious: Yes (Other)
  Sender: FDA-Public Use
  Company Number: US-BAYER-2012-093895

PATIENT
  Age: 35 Year
  Sex: Female
  Weight: 78.01 kg

DRUGS (1)
  1. MIRENA [Suspect]
     Indication: MENORRHAGIA
     Dosage: 20 mcg/24hr, CONT
     Route: 015
     Dates: start: 20120228, end: 20120905

REACTIONS (4)
  - Vaginal haemorrhage [None]
  - Device expulsion [None]
  - Abdominal pain [Recovering/Resolving]
  - Menorrhagia [Recovering/Resolving]
